FAERS Safety Report 10079885 (Version 3)
Quarter: 2014Q3

REPORT INFORMATION
  Report Type: Report from Study
  Country: RO (occurrence: RO)
  Receive Date: 20140415
  Receipt Date: 20140711
  Transmission Date: 20150326
  Serious: Yes (Hospitalization)
  Sender: FDA-Public Use
  Company Number: RO-OTSUKA-US-2014-10700

PATIENT
  Age: 49 Year
  Sex: Female

DRUGS (2)
  1. OPC-14597 [Suspect]
     Active Substance: CILOSTAZOL
     Dosage: 300 MG MILLIGRAM(S), QM
     Route: 030
     Dates: start: 20140120, end: 20140318
  2. OPC-14597 [Suspect]
     Active Substance: CILOSTAZOL
     Indication: BIPOLAR I DISORDER
     Dosage: UNK
     Route: 065
     Dates: start: 20130830, end: 20140119

REACTIONS (1)
  - Major depression [Recovering/Resolving]

NARRATIVE: CASE EVENT DATE: 20140404
